FAERS Safety Report 8353018-0 (Version None)
Quarter: 2012Q2

REPORT INFORMATION
  Report Type: 
  Country: None (occurrence: None)
  Receive Date: 20120511
  Receipt Date: 20120509
  Transmission Date: 20120825
  Serious: Yes (Life-Threatening, Hospitalization)
  Sender: FDA-Public Use
  Company Number: FR-ASTRAZENECA-2011SE51042

PATIENT
  Age: 44 Year
  Sex: Female

DRUGS (5)
  1. CELOCURINE [Suspect]
     Indication: ANAESTHESIA
     Route: 042
     Dates: start: 20110804, end: 20110804
  2. CLAVULANATE POTASSIUM [Suspect]
     Route: 042
     Dates: start: 20110804, end: 20110804
  3. SUFENTANIL RENAUDIN [Suspect]
     Indication: ANAESTHESIA
     Dosage: ONCE/SINGLE ADMINISTRATION
     Route: 042
     Dates: start: 20110804, end: 20110804
  4. CIPROFLOXACIN [Suspect]
     Route: 065
     Dates: start: 20110804, end: 20110804
  5. DIPRIVAN [Suspect]
     Indication: ANAESTHESIA
     Route: 042
     Dates: start: 20110804, end: 20110804

REACTIONS (1)
  - ANAPHYLACTIC SHOCK [None]
